FAERS Safety Report 8672902 (Version 2)
Quarter: 2012Q4

REPORT INFORMATION
  Report Type: Report from Study
  Country: US (occurrence: None)
  Receive Date: 20120703
  Receipt Date: 20120912
  Transmission Date: 20130627
  Serious: Yes (Death, Hospitalization)
  Sender: FDA-Public Use
  Company Number: US-JNJFOC-20120605805

PATIENT
  Age: 60 Year
  Sex: Female
  Weight: 62 kg

DRUGS (2)
  1. DACOGEN [Suspect]
     Indication: ACUTE MYELOID LEUKAEMIA
     Dosage: 20 MG/M2, INTRAVENOUS
     Route: 042
     Dates: start: 20120227, end: 20120308
  2. BORTEZOMIB [Suspect]
     Indication: ACUTE MYELOID LEUKAEMIA
     Dosage: 1.3 MG/M2, SUBCUTANEOUS
     Route: 058
     Dates: start: 20120227, end: 20120308

REACTIONS (18)
  - Lung infection [None]
  - Hypokalaemia [None]
  - Hypoalbuminaemia [None]
  - Dyspnoea [None]
  - Pulmonary oedema [None]
  - Hypoxia [None]
  - Febrile neutropenia [None]
  - Asthenia [None]
  - Dehydration [None]
  - Acidosis [None]
  - Hypotension [None]
  - Pneumonia fungal [None]
  - Acute myeloid leukaemia [None]
  - Malignant neoplasm progression [None]
  - Muscular weakness [None]
  - Blood alkaline phosphatase increased [None]
  - Renal failure acute [None]
  - Blood alkaline phosphatase increased [None]
